FAERS Safety Report 5122216-1 (Version None)
Quarter: 2006Q4

REPORT INFORMATION
  Report Type: 
  Country: None (occurrence: None)
  Receive Date: 20061006
  Receipt Date: 20060928
  Transmission Date: 20070319
  Serious: Yes (Hospitalization)
  Sender: FDA-Public Use
  Company Number: US-ABBOTT-06P-163-0345512-00

PATIENT
  Sex: Female
  Weight: 88.53 kg

DRUGS (10)
  1. HUMIRA [Suspect]
     Indication: RHEUMATOID ARTHRITIS
     Route: 058
     Dates: start: 20041101, end: 20060927
  2. HUMIRA [Suspect]
     Route: 058
     Dates: start: 20060927
  3. AMLODIPINE BESYLATE [Concomitant]
     Indication: BLOOD PRESSURE
     Route: 048
  4. CARVEDILOL [Concomitant]
     Indication: BLOOD PRESSURE
     Route: 048
  5. POTASSIUM [Concomitant]
     Indication: BLOOD POTASSIUM
     Route: 048
  6. SERETIDE MITE [Concomitant]
     Indication: ASTHMA
     Route: 055
  7. FLUTICASONE PROPIONATE [Concomitant]
     Indication: ASTHMA
     Route: 045
  8. ESOMEPRAZOLE MAGNESIUM [Concomitant]
     Indication: HYPERCHLORHYDRIA
     Route: 048
  9. METOCLOPRAMIDE [Concomitant]
     Indication: HYPERCHLORHYDRIA
     Route: 048
  10. VICODIN [Concomitant]
     Indication: PAIN
     Route: 048

REACTIONS (2)
  - ACCIDENTAL EXPOSURE [None]
  - CEREBROVASCULAR ACCIDENT [None]
